FAERS Safety Report 9121042 (Version 2)
Quarter: 2016Q3

REPORT INFORMATION
  Report Type: Spontaneous
  Country: GB (occurrence: GB)
  Receive Date: 20130226
  Receipt Date: 20160728
  Transmission Date: 20161109
  Serious: Yes (Hospitalization, Other)
  Sender: FDA-Public Use
  Company Number: GB-TEVA-237082ISR

PATIENT
  Age: 66 Year
  Sex: Female

DRUGS (7)
  1. METHOTREXATE. [Suspect]
     Active Substance: METHOTREXATE
     Indication: METASTASES TO MENINGES
     Route: 037
     Dates: start: 20091216, end: 20091218
  2. IBANDRONIC ACID [Concomitant]
     Active Substance: IBANDRONIC ACID
     Indication: METASTASES TO BONE
     Dosage: 50 MILLIGRAM DAILY;
     Route: 042
     Dates: start: 20090804
  3. QUININE [Concomitant]
     Active Substance: QUININE
     Indication: MUSCLE SPASMS
  4. CALCIUM FOLINATE [Concomitant]
     Active Substance: LEUCOVORIN CALCIUM
     Indication: SALVAGE THERAPY
  5. COD-ACAMOL [Concomitant]
     Indication: PRODUCT USED FOR UNKNOWN INDICATION
  6. METHOTREXATE. [Suspect]
     Active Substance: METHOTREXATE
     Indication: METASTASES TO MENINGES
     Route: 037
     Dates: start: 20100111
  7. TINZAPARIN [Concomitant]
     Active Substance: TINZAPARIN
     Indication: PULMONARY EMBOLISM
     Route: 042
     Dates: start: 20091205

REACTIONS (4)
  - Stomatitis [Recovered/Resolved]
  - Clostridium difficile colitis [Recovered/Resolved]
  - Pancytopenia [Recovered/Resolved]
  - Eczema asteatotic [Recovered/Resolved]

NARRATIVE: CASE EVENT DATE: 20091218
